FAERS Safety Report 5996156 (Version 2)
Quarter: 2013Q1

REPORT INFORMATION
  Report Type: Spontaneous
  Country: GB (occurrence: GB)
  Receive Date: 20060301
  Receipt Date: 20130214
  Transmission Date: 20140127
  Serious: Yes (Other)
  Sender: FDA-Public Use
  Company Number: GB-GLAXOSMITHKLINE-B0412853A

PATIENT
  Age: 65 Year
  Sex: Male
  Weight: 80 kg

DRUGS (1)
  1. REQUIP [Suspect]
     Indication: PARKINSON^S DISEASE
     Dosage: 5MG PER DAY
     Route: 048
     Dates: start: 20000204

REACTIONS (5)
  - Nausea [Recovered/Resolved]
  - Dyskinesia [Recovered/Resolved]
  - Abdominal pain [Recovered/Resolved]
  - Neutrophilia [Recovered/Resolved]
  - Intentional overdose [Unknown]
